FAERS Safety Report 25354480 (Version 2)
Quarter: 2025Q3

REPORT INFORMATION
  Report Type: Spontaneous
  Country: US (occurrence: US)
  Receive Date: 20250523
  Receipt Date: 20250722
  Transmission Date: 20251020
  Serious: Yes (Other)
  Sender: NEUROCRINE BIOSCIENCES
  Company Number: US-NEUROCRINE BIOSCIENCES INC.-2025NBI06309

PATIENT

DRUGS (2)
  1. INGREZZA SPRINKLE [Suspect]
     Active Substance: VALBENAZINE DITOSYLATE
     Indication: Tardive dyskinesia
     Route: 065
  2. INGREZZA SPRINKLE [Suspect]
     Active Substance: VALBENAZINE DITOSYLATE
     Route: 065

REACTIONS (1)
  - Psychotic disorder [Recovered/Resolved]
